FAERS Safety Report 16040844 (Version 1)
Quarter: 2019Q1

REPORT INFORMATION
  Report Type: Spontaneous
  Country: IT (occurrence: IT)
  Receive Date: 20190306
  Receipt Date: 20190306
  Transmission Date: 20190418
  Serious: Yes (Other)
  Sender: FDA-Public Use
  Company Number: IT-SA-2019SA057248

PATIENT
  Age: 53 Year
  Sex: Male

DRUGS (1)
  1. ENOXAPARIN SODIUM. [Suspect]
     Active Substance: ENOXAPARIN SODIUM
     Indication: PROPHYLAXIS
     Dosage: 4000 KIU, QD
     Route: 058

REACTIONS (1)
  - Tongue oedema [Recovering/Resolving]

NARRATIVE: CASE EVENT DATE: 20190121
